FAERS Safety Report 5643146-2 (Version None)
Quarter: 2008Q1

REPORT INFORMATION
  Report Type: 
  Country: None (occurrence: None)
  Receive Date: 20080228
  Receipt Date: 20080220
  Transmission Date: 20080703
  Serious: Yes (Other)
  Sender: FDA-Public Use
  Company Number: US-PURDUE-USA_2008_0031605

PATIENT
  Sex: Female

DRUGS (1)
  1. MS CONTIN [Suspect]
     Indication: DRUG USE FOR UNKNOWN INDICATION
     Dosage: 30 MG, TID
     Route: 048
     Dates: end: 20080101

REACTIONS (3)
  - DEMENTIA [None]
  - HALLUCINATION [None]
  - THYROID DISORDER [None]
